FAERS Safety Report 6409325-1 (Version None)
Quarter: 2009Q4

REPORT INFORMATION
  Report Type: 
  Country: None (occurrence: None)
  Receive Date: 20091021
  Receipt Date: 20091012
  Transmission Date: 20100525
  Serious: Yes (Hospitalization, Other)
  Sender: FDA-Public Use
  Company Number: IN-BAXTER-2009BH016033

PATIENT
  Age: 5 Year
  Sex: Female
  Weight: 16 kg

DRUGS (2)
  1. LACTATED RINGER'S [Suspect]
     Indication: DENGUE FEVER
     Route: 042
     Dates: start: 20091011, end: 20091011
  2. ELECTROLYTES NOS [Suspect]
     Indication: DENGUE FEVER
     Route: 042
     Dates: start: 20091011, end: 20091011

REACTIONS (2)
  - CHILLS [None]
  - PYREXIA [None]
